FAERS Safety Report 11614202 (Version 3)
Quarter: 2016Q2

REPORT INFORMATION
  Report Type: Report from Study
  Country: GB (occurrence: GB)
  Receive Date: 20151008
  Receipt Date: 20160503
  Transmission Date: 20160815
  Serious: Yes (Hospitalization)
  Sender: FDA-Public Use
  Company Number: PHHO2015GB006034

PATIENT
  Age: 72 Year
  Sex: Male
  Weight: 77.5 kg

DRUGS (4)
  1. INC424 [Suspect]
     Active Substance: RUXOLITINIB
     Indication: MYELOFIBROSIS
     Dosage: 20 MG, BID
     Route: 048
     Dates: start: 20140529, end: 20150929
  2. INC424 [Suspect]
     Active Substance: RUXOLITINIB
     Dosage: 15 MG, BID
     Route: 048
     Dates: start: 20151015, end: 20160203
  3. LDE 225 [Suspect]
     Active Substance: ERISMODEGIB
     Indication: MYELOFIBROSIS
     Dosage: 400 MG, QD
     Route: 048
     Dates: start: 20140529
  4. LDE 225 [Suspect]
     Active Substance: ERISMODEGIB
     Dosage: REDUCED ONLY 2 WEEKS PRIOR TO THE EVENT
     Route: 048

REACTIONS (1)
  - Hyperkalaemia [Recovering/Resolving]

NARRATIVE: CASE EVENT DATE: 20150409
